FAERS Safety Report 8180659-6 (Version None)
Quarter: 2012Q1

REPORT INFORMATION
  Report Type: 
  Country: None (occurrence: None)
  Receive Date: 20120302
  Receipt Date: 20120216
  Transmission Date: 20120608
  Serious: Yes (Hospitalization, Other)
  Sender: FDA-Public Use
  Company Number: CN-WATSON-2012-03003

PATIENT
  Age: 42 Year
  Sex: Male

DRUGS (2)
  1. BACLOFEN [Suspect]
     Dosage: 10 MG BID
     Route: 048
  2. BACLOFEN [Suspect]
     Indication: SUICIDE ATTEMPT
     Dosage: 800 MG, SINGLE
     Route: 048

REACTIONS (22)
  - PYREXIA [None]
  - CONFUSIONAL STATE [None]
  - HYPOTONIA [None]
  - BRADYCARDIA [None]
  - AREFLEXIA [None]
  - OCCULT BLOOD POSITIVE [None]
  - INSOMNIA [None]
  - HALLUCINATION, VISUAL [None]
  - PARTIAL SEIZURES [None]
  - AGITATION [None]
  - HALLUCINATION, AUDITORY [None]
  - RESTLESSNESS [None]
  - CYANOSIS [None]
  - RESPIRATORY DEPRESSION [None]
  - COMA [None]
  - HYPOTENSION [None]
  - DELIRIUM [None]
  - POSTURE ABNORMAL [None]
  - INTENTIONAL OVERDOSE [None]
  - DRUG WITHDRAWAL SYNDROME [None]
  - DISORIENTATION [None]
  - ENURESIS [None]
